FAERS Safety Report 8698826 (Version 2)
Quarter: 2013Q4

REPORT INFORMATION
  Report Type: Spontaneous
  Country: US (occurrence: US)
  Receive Date: 20120802
  Receipt Date: 20131101
  Transmission Date: 20140711
  Serious: No
  Sender: FDA-Public Use
  Company Number: US-009507513-1207USA011307

PATIENT
  Sex: Female

DRUGS (4)
  1. ZOCOR [Suspect]
     Dosage: 10 MG, UNK
     Route: 048
  2. PRILOSEC [Suspect]
  3. PLAVIX [Suspect]
  4. FLECTOR [Suspect]
     Dosage: UNK

REACTIONS (5)
  - Dysuria [Unknown]
  - Wrong technique in drug usage process [Unknown]
  - Urine output decreased [Unknown]
  - Faeces discoloured [Unknown]
  - Dizziness [Unknown]
